FAERS Safety Report 23172776 (Version 2)
Quarter: 2025Q1

REPORT INFORMATION
  Report Type: Spontaneous
  Country: US (occurrence: US)
  Receive Date: 20231110
  Receipt Date: 20250221
  Transmission Date: 20250409
  Serious: Yes (Hospitalization, Other)
  Sender: SK LIFE SCIENCE
  Company Number: US-SK LIFE SCIENCE, INC.-SKPVG-2023-001392

PATIENT

DRUGS (12)
  1. XCOPRI [Suspect]
     Active Substance: CENOBAMATE
     Indication: Seizure
     Route: 048
  2. XCOPRI [Suspect]
     Active Substance: CENOBAMATE
     Dosage: 150 MILLIGRAM, AT NIGHT, ONCE DAILY
     Route: 048
     Dates: end: 20231031
  3. XCOPRI [Suspect]
     Active Substance: CENOBAMATE
     Route: 048
  4. OXTELLAR XR [Concomitant]
     Active Substance: OXCARBAZEPINE
     Indication: Product used for unknown indication
     Dosage: 600 MILLIGRAM, TAKE THREE AT NIGHT
     Route: 065
  5. ZOLOFT [Concomitant]
     Active Substance: SERTRALINE HYDROCHLORIDE
     Indication: Product used for unknown indication
     Dosage: 100 MILLIGRAM, AT NIGHT
     Route: 065
  6. ASPIRIN [Concomitant]
     Active Substance: ASPIRIN
     Indication: Transient ischaemic attack
     Route: 065
  7. LISINOPRIL [Concomitant]
     Active Substance: LISINOPRIL
     Indication: Product used for unknown indication
     Route: 065
  8. TYLENOL [Concomitant]
     Active Substance: ACETAMINOPHEN
     Indication: Product used for unknown indication
     Route: 065
  9. ADVIL                              /00109201/ [Concomitant]
     Indication: Product used for unknown indication
     Route: 065
  10. ATARAX                             /00058401/ [Concomitant]
     Indication: Product used for unknown indication
     Route: 065
  11. UBROGEPANT [Concomitant]
     Active Substance: UBROGEPANT
     Indication: Headache
     Route: 065
  12. UBROGEPANT [Concomitant]
     Active Substance: UBROGEPANT
     Indication: Migraine

REACTIONS (7)
  - Seizure [Not Recovered/Not Resolved]
  - Transient ischaemic attack [Recovered/Resolved]
  - Product dose omission issue [Recovered/Resolved]
  - Drug interaction [Not Recovered/Not Resolved]
  - Convulsive threshold lowered [Not Recovered/Not Resolved]
  - Product dose omission issue [Not Recovered/Not Resolved]
  - Seizure [Unknown]

NARRATIVE: CASE EVENT DATE: 20220101
